FAERS Safety Report 8845144 (Version 2)
Quarter: 2013Q1

REPORT INFORMATION
  Report Type: Spontaneous
  Country: DK (occurrence: DK)
  Receive Date: 20121017
  Receipt Date: 20130225
  Transmission Date: 20140127
  Serious: Yes (Hospitalization)
  Sender: FDA-Public Use
  Company Number: DK-FRI-1000039427

PATIENT
  Sex: Female

DRUGS (1)
  1. CITALOPRAM [Suspect]
     Indication: DEPRESSION
     Dosage: 20 MG
     Dates: start: 2010, end: 2011

REACTIONS (2)
  - Oedema mouth [Recovered/Resolved]
  - Oropharyngeal swelling [Recovered/Resolved]
